FAERS Safety Report 23831733 (Version 1)
Quarter: 2024Q2

REPORT INFORMATION
  Report Type: Spontaneous
  Country: US (occurrence: None)
  Receive Date: 20240507
  Receipt Date: 20240507
  Transmission Date: 20240715
  Serious: Yes (Other)
  Sender: FDA-Public Use
  Company Number: None

PATIENT
  Age: 32 Year
  Sex: Female
  Weight: 73.9 kg

DRUGS (1)
  1. TEPLIZUMAB [Suspect]
     Active Substance: TEPLIZUMAB
     Indication: Type 1 diabetes mellitus
     Dates: start: 20240415, end: 20240428

REACTIONS (1)
  - Herpes zoster [None]

NARRATIVE: CASE EVENT DATE: 20240504
